FAERS Safety Report 7372743-1 (Version None)
Quarter: 2011Q1

REPORT INFORMATION
  Report Type: 
  Country: None (occurrence: None)
  Receive Date: 20110315
  Receipt Date: 20110228
  Transmission Date: 20110831
  Serious: Yes (Hospitalization)
  Sender: FDA-Public Use
  Company Number: 024547

PATIENT
  Sex: Female

DRUGS (12)
  1. CERTOLIZUMAB PEGOL (CERTOLIZUMAB PEGOL) [Suspect]
     Indication: RHEUMATOID ARTHRITIS
     Dosage: 400 MG  1/2 , 1/4 WEEKS, SUBCUTANEOUS
     Route: 058
     Dates: start: 20090316
  2. CERTOLIZUMAB PEGOL (CERTOLIZUMAB PEGOL) [Suspect]
     Indication: RHEUMATOID ARTHRITIS
     Dosage: 400 MG  1/2 , 1/4 WEEKS, SUBCUTANEOUS
     Route: 058
     Dates: start: 20090928, end: 20101203
  3. CERTOLIZUMAB PEGOL (CERTOLIZUMAB PEGOL) [Suspect]
     Indication: RHEUMATOID ARTHRITIS
     Dosage: 400 MG  1/2 , 1/4 WEEKS, SUBCUTANEOUS
     Route: 058
     Dates: start: 20110121
  4. KETOPROFEN [Concomitant]
  5. METHOTREXATE [Concomitant]
  6. DICLOFENAC SODIUM [Concomitant]
  7. AMLODIPINE BESILATE [Concomitant]
  8. PREDNISOLONE [Concomitant]
  9. FLUOROMETHOLONE [Concomitant]
  10. FOLIC ACID [Concomitant]
  11. CELECOXIB [Concomitant]
  12. TROXIPIDE [Concomitant]

REACTIONS (6)
  - VIITH NERVE PARALYSIS [None]
  - OTITIS MEDIA CHRONIC [None]
  - RHEUMATOID ARTHRITIS [None]
  - CONSTIPATION [None]
  - CONDITION AGGRAVATED [None]
  - CHOLESTEATOMA [None]
